FAERS Safety Report 18266641 (Version 1)
Quarter: 2020Q3

REPORT INFORMATION
  Report Type: Spontaneous
  Country: US (occurrence: US)
  Receive Date: 20200914
  Receipt Date: 20200914
  Transmission Date: 20201103
  Serious: Yes (Death)
  Sender: FDA-Public Use
  Company Number: None

PATIENT
  Sex: Male

DRUGS (10)
  1. DESCOVY [Suspect]
     Active Substance: EMTRICITABINE\TENOFOVIR ALAFENAMIDE FUMARATE
     Indication: HIV INFECTION
     Route: 048
     Dates: start: 20200611
  2. METFORMIN [Concomitant]
     Active Substance: METFORMIN HYDROCHLORIDE
  3. AMITRIPTYLINE 25 MG [Concomitant]
     Active Substance: AMITRIPTYLINE
  4. DILTIAZEM ER 240 MG [Concomitant]
  5. ATORVASTATIN 40 MG [Concomitant]
     Active Substance: ATORVASTATIN
  6. HUMALOG [Concomitant]
     Active Substance: INSULIN LISPRO
  7. TIVICAY [Suspect]
     Active Substance: DOLUTEGRAVIR SODIUM
  8. GABAPENTIN 300 MG [Concomitant]
     Active Substance: GABAPENTIN
  9. LISINOPRIL 20 MG [Concomitant]
     Active Substance: LISINOPRIL
  10. CITALOPRAM [Concomitant]
     Active Substance: CITALOPRAM HYDROBROMIDE

REACTIONS (1)
  - Death [None]
